FAERS Safety Report 4342914-7 (Version None)
Quarter: 2004Q2

REPORT INFORMATION
  Report Type: 
  Country: None (occurrence: None)
  Receive Date: 20040416
  Receipt Date: 20040408
  Transmission Date: 20050107
  Serious: Yes (Other)
  Sender: FDA-Public Use
  Company Number: HQWYE905324DEC03

PATIENT

DRUGS (2)
  1. CORDARONE [Suspect]
     Dosage: 300 MG 1X PER 1 DAY
     Route: 042
     Dates: start: 20031213, end: 20031213
  2. CORDARONE [Suspect]
     Dosage: 200 MG 1X PER 1 DAY
     Route: 048
     Dates: start: 20031215

REACTIONS (1)
  - HALLUCINATION, VISUAL [None]
